FAERS Safety Report 16154484 (Version 1)
Quarter: 2019Q2

REPORT INFORMATION
  Report Type: Spontaneous
  Country: NL (occurrence: PT)
  Receive Date: 20190403
  Receipt Date: 20190403
  Transmission Date: 20190711
  Serious: Yes (Other)
  Sender: FDA-Public Use
  Company Number: PT-FRESENIUS KABI-FK201903438

PATIENT
  Age: 29 Year
  Sex: Female

DRUGS (2)
  1. AMPICILLIN (MANUFACTURER UNKNOWN) [Suspect]
     Active Substance: AMPICILLIN
     Indication: INFECTION
     Route: 042
     Dates: start: 2006
  2. GENTAMICIN (MANUFACTURER UNKNOWN) [Suspect]
     Active Substance: GENTAMICIN
     Indication: INFECTION
     Route: 042

REACTIONS (3)
  - Rash maculo-papular [Recovered/Resolved]
  - Rash pruritic [Recovered/Resolved]
  - Face oedema [Recovered/Resolved]

NARRATIVE: CASE EVENT DATE: 2006
